FAERS Safety Report 9175983 (Version 2)
Quarter: 2013Q4

REPORT INFORMATION
  Report Type: Spontaneous
  Country: GB (occurrence: GB)
  Receive Date: 20130320
  Receipt Date: 20131015
  Transmission Date: 20140711
  Serious: Yes (Other)
  Sender: FDA-Public Use
  Company Number: GB-WATSON-2013-04754

PATIENT
  Age: 25 Year
  Sex: Female

DRUGS (1)
  1. MIRTAZAPINE (UNKNOWN) [Suspect]
     Indication: DEPRESSION
     Dosage: 30 MG, UNKNOWN
     Route: 048

REACTIONS (5)
  - Suicidal ideation [Recovering/Resolving]
  - Hostility [Recovering/Resolving]
  - Impulsive behaviour [Recovering/Resolving]
  - Condition aggravated [Recovering/Resolving]
  - Suicidal behaviour [Recovering/Resolving]
